FAERS Safety Report 8624363-6 (Version None)
Quarter: 2012Q3

REPORT INFORMATION
  Report Type: 
  Country: None (occurrence: None)
  Receive Date: 20120827
  Receipt Date: 20120718
  Transmission Date: 20120928
  Serious: No
  Sender: FDA-Public Use
  Company Number: US-BAYER-2012-072153

PATIENT
  Age: 71 Year
  Sex: Male

DRUGS (4)
  1. LEVITRA [Suspect]
     Dosage: HALF OR QUARTER OF 20MG TABLET
     Route: 048
     Dates: start: 20120526
  2. LEVITRA [Suspect]
     Dosage: 0.5 DF, UNK
     Route: 048
     Dates: start: 20120526
  3. FINASTERIDE [Concomitant]
  4. VERAPAMIL [Concomitant]
     Dosage: UNK

REACTIONS (2)
  - ABDOMINAL DISCOMFORT [None]
  - NAUSEA [None]
